FAERS Safety Report 13082976 (Version 1)
Quarter: 2017Q1

REPORT INFORMATION
  Report Type: Spontaneous
  Country: US (occurrence: US)
  Receive Date: 20170103
  Receipt Date: 20170103
  Transmission Date: 20170428
  Serious: No
  Sender: FDA-Public Use
  Company Number: US-AUROBINDO-AUR-APU-2016-06335

PATIENT
  Sex: Male

DRUGS (1)
  1. GLYBURIDE AND METFORMIN HYDROCHLORIDE TABLETS 2.5/500 MG [Suspect]
     Active Substance: GLYBURIDE\METFORMIN HYDROCHLORIDE
     Indication: DIABETES MELLITUS
     Route: 065

REACTIONS (7)
  - Product substitution issue [Unknown]
  - Blood pressure inadequately controlled [None]
  - Drug ineffective [Unknown]
  - Hyperhidrosis [None]
  - Hypertension [Unknown]
  - Blood glucose decreased [None]
  - Wrong technique in product usage process [None]
